FAERS Safety Report 7780102-2 (Version None)
Quarter: 2011Q3

REPORT INFORMATION
  Report Type: 
  Country: None (occurrence: None)
  Receive Date: 20110927
  Receipt Date: 20110322
  Transmission Date: 20111222
  Serious: No
  Sender: FDA-Public Use
  Company Number: US-ASTRAZENECA-2011SE16220

PATIENT
  Age: 26 Year
  Sex: Female
  Weight: 63.5 kg

DRUGS (2)
  1. NEUROTININ [Concomitant]
     Indication: PAIN
  2. SEROQUEL XR [Suspect]
     Indication: INSOMNIA
     Route: 048

REACTIONS (3)
  - CRYING [None]
  - DEPRESSION [None]
  - DRUG DOSE OMISSION [None]
